FAERS Safety Report 5313941-8 (Version None)
Quarter: 2007Q2

REPORT INFORMATION
  Report Type: 
  Country: None (occurrence: None)
  Receive Date: 20070501
  Receipt Date: 20070420
  Transmission Date: 20071010
  Serious: Yes (Hospitalization, Other)
  Sender: FDA-Public Use
  Company Number: US-PFIZER INC-2006124713

PATIENT
  Sex: Male
  Weight: 99.8 kg

DRUGS (16)
  1. CELEBREX [Suspect]
     Route: 048
  2. BEXTRA [Suspect]
     Indication: ARTHRITIS
     Route: 048
     Dates: start: 20031103, end: 20040728
  3. VIOXX [Suspect]
     Indication: ARTHRITIS
     Route: 048
     Dates: start: 20000418, end: 20040920
  4. CARDURA [Concomitant]
  5. ZOCOR [Concomitant]
  6. ALLOPURINOL [Concomitant]
  7. POTASSIUM CHLORIDE [Concomitant]
  8. LOSARTAN POSTASSIUM [Concomitant]
  9. NEXIUM [Concomitant]
  10. CIALIS [Concomitant]
  11. PREVACID [Concomitant]
  12. AMBIEN [Concomitant]
  13. INDOMETHACIN [Concomitant]
  14. FUROSEMIDE [Concomitant]
  15. PLAVIX [Concomitant]
  16. HYDROCODONE [Concomitant]

REACTIONS (1)
  - ISCHAEMIC STROKE [None]
